FAERS Safety Report 18893216 (Version 12)
Quarter: 2021Q2

REPORT INFORMATION
  Report Type: Report from Study
  Country: US (occurrence: US)
  Receive Date: 20210215
  Receipt Date: 20210629
  Transmission Date: 20210717
  Serious: No
  Sender: FDA-Public Use
  Company Number: US-B.I. PHARMACEUTICALS,INC./RIDGEFIELD-2021-BI-078933

PATIENT
  Age: 70 Year
  Sex: Male

DRUGS (1)
  1. OFEV [Suspect]
     Active Substance: NINTEDANIB
     Indication: IDIOPATHIC PULMONARY FIBROSIS
     Route: 048
     Dates: start: 20210114

REACTIONS (26)
  - Diarrhoea [Unknown]
  - Nausea [Not Recovered/Not Resolved]
  - Weight decreased [Unknown]
  - Oedema [Not Recovered/Not Resolved]
  - Muscle spasms [Recovering/Resolving]
  - Vomiting [Recovered/Resolved]
  - Stent placement [Unknown]
  - Haemorrhoids [Unknown]
  - Decreased appetite [Unknown]
  - Heart rate decreased [Not Recovered/Not Resolved]
  - Vomiting [Recovered/Resolved]
  - Upper respiratory tract infection [Unknown]
  - Hepatitis C [Unknown]
  - Haematochezia [Unknown]
  - Diarrhoea [Recovered/Resolved]
  - Fatigue [Unknown]
  - Faeces discoloured [Recovering/Resolving]
  - Oropharyngeal pain [Unknown]
  - Flatulence [Unknown]
  - Asthenia [Unknown]
  - Abdominal pain upper [Unknown]
  - Dehydration [Unknown]
  - Fatigue [Not Recovered/Not Resolved]
  - Vomiting [Unknown]
  - Diarrhoea [Unknown]
  - Liver function test increased [Recovering/Resolving]

NARRATIVE: CASE EVENT DATE: 202101
